FAERS Safety Report 7426224-7 (Version None)
Quarter: 2011Q2

REPORT INFORMATION
  Report Type: 
  Country: None (occurrence: None)
  Receive Date: 20110420
  Receipt Date: 20110412
  Transmission Date: 20111010
  Serious: Yes (Hospitalization)
  Sender: FDA-Public Use
  Company Number: A0887680A

PATIENT
  Age: 40 Year
  Sex: Male

DRUGS (10)
  1. NIASPAN [Concomitant]
  2. VYTORIN [Concomitant]
  3. ALLOPURINOL [Concomitant]
  4. AVANDIA [Suspect]
     Indication: DIABETES MELLITUS
     Route: 048
     Dates: start: 20031201, end: 20080901
  5. AVANDAMET [Suspect]
     Indication: DIABETES MELLITUS
     Route: 048
  6. TRICOR [Concomitant]
  7. GLUCOPHAGE [Concomitant]
  8. METFORMIN [Concomitant]
  9. LOVAZA [Concomitant]
  10. ASPIRIN [Concomitant]

REACTIONS (2)
  - TRANSIENT ISCHAEMIC ATTACK [None]
  - CEREBROVASCULAR ACCIDENT [None]
